FAERS Safety Report 5221761-8 (Version None)
Quarter: 2007Q1

REPORT INFORMATION
  Report Type: 
  Country: None (occurrence: None)
  Receive Date: 20070129
  Receipt Date: 20070117
  Transmission Date: 20070707
  Serious: Yes (Hospitalization)
  Sender: FDA-Public Use
  Company Number: AU-ELI_LILLY_AND_COMPANY-AU200701004529

PATIENT
  Age: 35 Year
  Sex: Male

DRUGS (1)
  1. ZYPREXA [Suspect]
     Dosage: 10 MG, DAILY (1/D)
     Dates: start: 20040101

REACTIONS (1)
  - NEUTROPHILIA [None]
